FAERS Safety Report 19438685 (Version 1)
Quarter: 2021Q2

REPORT INFORMATION
  Report Type: Spontaneous
  Country: CN (occurrence: CN)
  Receive Date: 20210618
  Receipt Date: 20210618
  Transmission Date: 20210717
  Serious: Yes (Other)
  Sender: FDA-Public Use
  Company Number: CN-GLAXOSMITHKLINE-CN2021APC103361

PATIENT
  Age: 20 Year
  Sex: Female

DRUGS (4)
  1. PROPRANOLOL TABLETS [Suspect]
     Active Substance: PROPRANOLOL HYDROCHLORIDE
     Indication: MOOD ALTERED
     Dosage: UNK
     Route: 048
     Dates: start: 20210511
  2. LAMICTAL [Suspect]
     Active Substance: LAMOTRIGINE
     Indication: MOOD ALTERED
     Dosage: UNK UNK, QD (HALF A TABLET/ EVERY NIGHT)
     Route: 048
     Dates: start: 20210511
  3. SERTRALINE HYDROCHLORIDE TABLETS [Suspect]
     Active Substance: SERTRALINE HYDROCHLORIDE
     Indication: MOOD ALTERED
     Dosage: UNK
     Route: 048
     Dates: start: 20210511
  4. CLONAZEPAM TABLETS [Suspect]
     Active Substance: CLONAZEPAM
     Indication: MOOD ALTERED
     Dosage: UNK
     Route: 048
     Dates: start: 20210511

REACTIONS (7)
  - Dependent personality disorder [Unknown]
  - Wrong technique in product usage process [Not Recovered/Not Resolved]
  - Intentional self-injury [Unknown]
  - Loss of personal independence in daily activities [Unknown]
  - Neuralgia [Unknown]
  - Bradykinesia [Not Recovered/Not Resolved]
  - Tremor [Not Recovered/Not Resolved]

NARRATIVE: CASE EVENT DATE: 202105
